FAERS Safety Report 24173971 (Version 1)
Quarter: 2024Q3

REPORT INFORMATION
  Report Type: Spontaneous
  Country: CO (occurrence: CO)
  Receive Date: 20240805
  Receipt Date: 20240805
  Transmission Date: 20241016
  Serious: Yes (Other)
  Sender: AMGEN
  Company Number: CO-AMGEN-COLSP2024151116

PATIENT
  Age: 61 Year
  Sex: Female

DRUGS (1)
  1. PROLIA [Suspect]
     Active Substance: DENOSUMAB
     Indication: Osteoporosis postmenopausal
     Dosage: UNK UNK, Q6MO
     Route: 065
     Dates: start: 2019

REACTIONS (4)
  - Lumbar vertebral fracture [Unknown]
  - Thoracic vertebral fracture [Unknown]
  - Intentional product misuse [Unknown]
  - Rebound effect [Unknown]
